FAERS Safety Report 5442925-4 (Version None)
Quarter: 2007Q3

REPORT INFORMATION
  Report Type: 
  Country: None (occurrence: None)
  Receive Date: 20070830
  Receipt Date: 20070816
  Transmission Date: 20080115
  Serious: Yes (Life-Threatening, Hospitalization)
  Sender: FDA-Public Use
  Company Number: DE-JNJFOC-20070402470

PATIENT
  Age: 76 Year
  Sex: Female

DRUGS (4)
  1. DECITABINE (DECITABINE) LYOPHILIZED [Suspect]
     Indication: ACUTE MYELOID LEUKAEMIA
     Dosage: CYCLE 1
     Dates: start: 20060918, end: 20060920
  2. PANTOZOL (PANTOPRAZOLE SODIUM) [Concomitant]
  3. IBUPROFEN [Concomitant]
  4. CIPROFLOXACIN [Concomitant]

REACTIONS (2)
  - OEDEMA PERIPHERAL [None]
  - THROMBOCYTOPENIA [None]
